FAERS Safety Report 8811710 (Version 1)
Quarter: 2012Q4

REPORT INFORMATION
  Report Type: Spontaneous
  Country: US (occurrence: None)
  Receive Date: 20120925
  Receipt Date: 20120925
  Transmission Date: 20130627
  Serious: Yes (Disabling)
  Sender: FDA-Public Use
  Company Number: None

PATIENT
  Age: 67 Year
  Sex: Male
  Weight: 102.51 kg

DRUGS (1)
  1. HEPARIN [Suspect]
     Route: 030
     Dates: start: 20120904, end: 20120907

REACTIONS (5)
  - Gait disturbance [None]
  - Pain in extremity [None]
  - Pain [None]
  - Myalgia [None]
  - Bone pain [None]
